FAERS Safety Report 23431008 (Version 2)
Quarter: 2024Q1

REPORT INFORMATION
  Report Type: Spontaneous
  Country: US (occurrence: US)
  Receive Date: 20240123
  Receipt Date: 20240229
  Transmission Date: 20240410
  Serious: No
  Sender: FDA-Public Use
  Company Number: US-SA-SAC20240116000868

PATIENT
  Age: 8 Year
  Sex: Female

DRUGS (1)
  1. DUPIXENT [Suspect]
     Active Substance: DUPILUMAB
     Indication: Dermatitis atopic
     Dosage: 200 MG, QOW
     Route: 058

REACTIONS (9)
  - Sleep disorder [Unknown]
  - Pharyngitis streptococcal [Unknown]
  - COVID-19 [Recovering/Resolving]
  - Dry skin [Unknown]
  - Pruritus [Unknown]
  - Skin exfoliation [Unknown]
  - Oropharyngeal pain [Unknown]
  - Vision blurred [Unknown]
  - Rash [Unknown]

NARRATIVE: CASE EVENT DATE: 20231201
